FAERS Safety Report 8020947-7 (Version None)
Quarter: 2011Q4

REPORT INFORMATION
  Report Type: 
  Country: None (occurrence: None)
  Receive Date: 20111229
  Receipt Date: 20111229
  Transmission Date: 20120403
  Serious: Yes (Hospitalization)
  Sender: FDA-Public Use
  Company Number: None

PATIENT
  Age: 80 Year
  Sex: Male
  Weight: 115.8 kg

DRUGS (1)
  1. TIMOLOL MALEATE [Suspect]
     Indication: GLAUCOMA
     Dosage: 1 DROPS AM EYE
     Route: 047
     Dates: start: 20030624, end: 20111228

REACTIONS (3)
  - BRADYCARDIA [None]
  - SYNCOPE [None]
  - ATRIOVENTRICULAR BLOCK [None]
